FAERS Safety Report 7579032-0 (Version None)
Quarter: 2011Q2

REPORT INFORMATION
  Report Type: 
  Country: None (occurrence: None)
  Receive Date: 20110628
  Receipt Date: 20110623
  Transmission Date: 20111010
  Serious: Yes (Death, Other)
  Sender: FDA-Public Use
  Company Number: PHHY2011CN55687

PATIENT
  Age: 33 Year
  Sex: Male

DRUGS (3)
  1. PREDNISONE [Suspect]
     Indication: PLATELET COUNT DECREASED
     Dosage: 30 MG, 15-30 MG DAILY
  2. CYCLOSPORINE [Suspect]
     Indication: PROPHYLAXIS AGAINST GRAFT VERSUS HOST DISEASE
  3. CYCLOSPORINE [Suspect]
     Indication: APLASTIC ANAEMIA
     Dosage: UNK

REACTIONS (21)
  - PYREXIA [None]
  - PLATELET COUNT DECREASED [None]
  - COUGH [None]
  - EPIGASTRIC DISCOMFORT [None]
  - FURUNCLE [None]
  - TRANSPLANT REJECTION [None]
  - VARICELLA [None]
  - RESPIRATORY TRACT INFECTION [None]
  - OEDEMA [None]
  - CACHEXIA [None]
  - PANCYTOPENIA [None]
  - EXOPHTHALMOS [None]
  - HAEMORRHAGE INTRACRANIAL [None]
  - THROMBOCYTOPENIA [None]
  - HEPATOSPLENOMEGALY [None]
  - EYE DISCHARGE [None]
  - KAPOSI'S SARCOMA [None]
  - LYMPHADENOPATHY [None]
  - PNEUMONIA [None]
  - CONJUNCTIVAL ULCER [None]
  - APLASTIC ANAEMIA [None]
